FAERS Safety Report 4696932-X (Version None)
Quarter: 2005Q2

REPORT INFORMATION
  Report Type: 
  Country: None (occurrence: None)
  Receive Date: 20050620
  Receipt Date: 20050422
  Transmission Date: 20051028
  Serious: No
  Sender: FDA-Public Use
  Company Number: US-YAMANOUCHI-YPA20050217

PATIENT
  Age: 62 Year
  Sex: Female
  Weight: 170.0989 kg

DRUGS (12)
  1. VESICARE [Suspect]
     Indication: BLADDER DISORDER
     Dosage: 5 MG QD PO
     Route: 048
     Dates: start: 20050422
  2. METFORMIN [Concomitant]
  3. GLIPIZIDE [Concomitant]
  4. HYDROCHLOROTHIAZIDE [Concomitant]
  5. PRANDIN ^KUHN^ [Concomitant]
  6. THEOPHYLLINE [Concomitant]
  7. LEVOXYL [Concomitant]
  8. LISINOPRIL [Concomitant]
  9. BUMETANIDE [Concomitant]
  10. TOPROL-XL [Concomitant]
  11. ALBUTEROL [Concomitant]
  12. OXYGEN [Concomitant]

REACTIONS (3)
  - ABDOMINAL PAIN UPPER [None]
  - DRUG INEFFECTIVE [None]
  - DRY MOUTH [None]
